FAERS Safety Report 19252489 (Version 6)
Quarter: 2021Q3

REPORT INFORMATION
  Report Type: Report from Study
  Country: CZ (occurrence: CZ)
  Receive Date: 20210512
  Receipt Date: 20210706
  Transmission Date: 20211014
  Serious: Yes (Hospitalization)
  Sender: FDA-Public Use
  Company Number: CZ-ROCHE-2793206

PATIENT
  Age: 52 Year
  Sex: Female
  Weight: 75 kg

DRUGS (94)
  1. FENTANYL. [Concomitant]
     Active Substance: FENTANYL
     Route: 062
     Dates: start: 20201209
  2. FENTANYL. [Concomitant]
     Active Substance: FENTANYL
     Dosage: 25 OTHER
     Route: 062
     Dates: start: 20201008, end: 20201208
  3. OLANZAPIN [Concomitant]
     Active Substance: OLANZAPINE
     Route: 048
     Dates: start: 20200225
  4. ORTANOL [Concomitant]
     Active Substance: OMEPRAZOLE
     Route: 048
     Dates: start: 20200507
  5. KALIUM CHLORATUM [Concomitant]
     Active Substance: POTASSIUM CHLORIDE
     Route: 042
     Dates: start: 20200603, end: 20200604
  6. KALIUM CHLORATUM [Concomitant]
     Active Substance: POTASSIUM CHLORIDE
     Route: 042
     Dates: start: 20210314, end: 20210314
  7. ONDANSETRON [Concomitant]
     Active Substance: ONDANSETRON
     Indication: NAUSEA
     Route: 042
     Dates: start: 20200527, end: 20200527
  8. DEGAN [Concomitant]
     Active Substance: METOCLOPRAMIDE HYDROCHLORIDE
     Indication: VOMITING
  9. GLUCOSA (CZECH REPUBLIC) [Concomitant]
     Route: 042
     Dates: start: 20210314, end: 20210314
  10. GLUCOSA (CZECH REPUBLIC) [Concomitant]
     Route: 042
     Dates: start: 20200603, end: 20200604
  11. TENSIOMIN [Concomitant]
     Active Substance: CAPTOPRIL
     Route: 048
     Dates: start: 20200603, end: 20200603
  12. FORTECORTIN [Concomitant]
     Active Substance: DEXAMETHASONE
     Indication: ABDOMINAL PAIN
     Route: 048
     Dates: start: 20200918, end: 20200921
  13. ITOPRID [Concomitant]
     Indication: ABDOMINAL PAIN
     Route: 048
     Dates: start: 20200609, end: 20210420
  14. ATEZOLIZUMAB. [Suspect]
     Active Substance: ATEZOLIZUMAB
     Indication: MALIGNANT NEOPLASM OF UNKNOWN PRIMARY SITE
     Dosage: LAST DOSE OF ATEZOLIZUMAB: 10/MAR/2021 1200 MG
     Route: 041
     Dates: start: 20210127
  15. GEMCITABINE. [Suspect]
     Active Substance: GEMCITABINE
     Indication: MALIGNANT NEOPLASM OF UNKNOWN PRIMARY SITE
     Route: 042
  16. OXYCODONE [Concomitant]
     Active Substance: OXYCODONE
     Route: 048
     Dates: start: 20210505
  17. OLANZAPIN [Concomitant]
     Active Substance: OLANZAPINE
     Route: 048
     Dates: start: 20210419
  18. RINGERFUNDIN [Concomitant]
     Active Substance: CALCIUM CHLORIDE\MAGNESIUM CHLORIDE\MALIC ACID\POTASSIUM CHLORIDE\SODIUM ACETATE\SODIUM CHLORIDE
     Indication: ABDOMINAL PAIN
     Route: 042
     Dates: start: 20200506, end: 20200511
  19. KALIUM CHLORATUM [Concomitant]
     Active Substance: POTASSIUM CHLORIDE
     Indication: HYPOKALAEMIA
     Route: 048
     Dates: start: 20201208
  20. MAGNESIUM SULFURICUM [Concomitant]
     Indication: VOMITING
  21. FORTECORTIN [Concomitant]
     Active Substance: DEXAMETHASONE
     Route: 048
     Dates: start: 20200807, end: 20200915
  22. LEXAURIN [Concomitant]
     Active Substance: BROMAZEPAM
     Dates: start: 20200605, end: 20200605
  23. MAGNOSOLV [Concomitant]
     Active Substance: MAGNESIUM CARBONATE\MAGNESIUM OXIDE
     Indication: HYPOMAGNESAEMIA
     Route: 048
     Dates: start: 20200608
  24. PRESTARIUM NEO [Concomitant]
     Active Substance: PERINDOPRIL ARGININE
     Indication: ABDOMINAL PAIN
     Route: 048
     Dates: start: 20200605, end: 20210420
  25. SALINE [Concomitant]
     Active Substance: SODIUM CHLORIDE
     Route: 042
     Dates: start: 20210507, end: 20210507
  26. NOLPAZA [Concomitant]
     Active Substance: PANTOPRAZOLE SODIUM
     Route: 048
     Dates: start: 20210509
  27. DEXAMETHASON [Concomitant]
     Active Substance: DEXAMETHASONE
     Route: 048
     Dates: start: 20210217, end: 20210309
  28. RINGERFUNDIN [Concomitant]
     Active Substance: CALCIUM CHLORIDE\MAGNESIUM CHLORIDE\MALIC ACID\POTASSIUM CHLORIDE\SODIUM ACETATE\SODIUM CHLORIDE
     Indication: HYPOKALAEMIA
  29. TENSIOMIN [Concomitant]
     Active Substance: CAPTOPRIL
     Indication: HYPERTENSION
     Route: 048
     Dates: start: 20200605, end: 20200605
  30. FRAXIPARINE [Concomitant]
     Active Substance: NADROPARIN CALCIUM
     Indication: VENA CAVA THROMBOSIS
     Route: 058
     Dates: start: 20201207
  31. FORTECORTIN [Concomitant]
     Active Substance: DEXAMETHASONE
     Indication: VOMITING
     Route: 048
     Dates: start: 20200916, end: 20200917
  32. FORTECORTIN [Concomitant]
     Active Substance: DEXAMETHASONE
     Route: 048
     Dates: start: 20200617, end: 20200630
  33. FURON [Concomitant]
     Active Substance: FUROSEMIDE
     Indication: OEDEMA
     Route: 048
     Dates: start: 20210424, end: 20210424
  34. NOVALGIN (CZECH REPUBLIC) [Concomitant]
     Route: 042
     Dates: start: 20210506, end: 20210507
  35. NOVALGIN (CZECH REPUBLIC) [Concomitant]
     Route: 042
     Dates: start: 20210508, end: 20210508
  36. FENTANYL. [Concomitant]
     Active Substance: FENTANYL
     Indication: ABDOMINAL PAIN
     Route: 062
  37. BIOFENAC (CZECH REPUBLIC) [Concomitant]
     Indication: ABDOMINAL PAIN
     Route: 048
     Dates: start: 20200225, end: 20200918
  38. ORTANOL [Concomitant]
     Active Substance: OMEPRAZOLE
     Route: 048
     Dates: start: 20200507, end: 20210420
  39. DEXAMETHASON [Concomitant]
     Active Substance: DEXAMETHASONE
     Route: 042
     Dates: start: 20200527, end: 20200527
  40. KALIUM CHLORATUM [Concomitant]
     Active Substance: POTASSIUM CHLORIDE
     Route: 048
     Dates: start: 20201207, end: 20201207
  41. DEGAN [Concomitant]
     Active Substance: METOCLOPRAMIDE HYDROCHLORIDE
     Indication: ABDOMINAL PAIN
     Route: 042
     Dates: start: 20200506, end: 20200609
  42. TENSIOMIN [Concomitant]
     Active Substance: CAPTOPRIL
     Indication: ABDOMINAL PAIN
     Route: 048
     Dates: start: 20200525, end: 20200525
  43. DUPHALAC [Concomitant]
     Active Substance: LACTULOSE
     Indication: CONSTIPATION
     Route: 048
     Dates: start: 20201208
  44. ITOPRID [Concomitant]
     Indication: HYPERTENSION
  45. LEXAURIN [Concomitant]
     Active Substance: BROMAZEPAM
     Route: 048
     Dates: start: 20210505, end: 20210505
  46. HYDROCORTISON [HYDROCORTISONE] [Concomitant]
     Active Substance: HYDROCORTISONE
     Indication: VOMITING
  47. PRESTARIUM NEO [Concomitant]
     Active Substance: PERINDOPRIL ARGININE
     Indication: HYPERTENSION
  48. DEXAMED (CZECH REPUBLIC) [Concomitant]
     Indication: VOMITING
     Route: 042
     Dates: start: 20200615, end: 20200616
  49. FUCICORT [Concomitant]
     Active Substance: BETAMETHASONE VALERATE\FUSIDIC ACID
  50. DEXAMETHASON [Concomitant]
     Active Substance: DEXAMETHASONE
     Indication: BACK PAIN
     Route: 048
     Dates: start: 20200225, end: 20200512
  51. DEXAMETHASON [Concomitant]
     Active Substance: DEXAMETHASONE
     Route: 048
     Dates: start: 20201228, end: 20210216
  52. KALIUM CHLORATUM [Concomitant]
     Active Substance: POTASSIUM CHLORIDE
     Route: 048
     Dates: start: 20200610, end: 20200630
  53. DEGAN [Concomitant]
     Active Substance: METOCLOPRAMIDE HYDROCHLORIDE
     Indication: DECREASED APPETITE
  54. AGEN [Concomitant]
     Active Substance: AMLODIPINE BESYLATE
     Indication: ABDOMINAL PAIN
     Route: 048
     Dates: start: 20200526, end: 20200604
  55. AGEN [Concomitant]
     Active Substance: AMLODIPINE BESYLATE
     Indication: HYPERTENSION
  56. PFIZER?BIONTECH COVID?19 VACCINE [Concomitant]
     Active Substance: TOZINAMERAN
     Route: 030
     Dates: start: 20210322, end: 20210322
  57. PFIZER?BIONTECH COVID?19 VACCINE [Concomitant]
     Active Substance: TOZINAMERAN
     Route: 030
     Dates: start: 20210412, end: 20210412
  58. NOVALGIN (CZECH REPUBLIC) [Concomitant]
     Indication: ABDOMINAL PAIN
     Route: 048
     Dates: start: 20200612, end: 20200612
  59. CISPLATIN. [Suspect]
     Active Substance: CISPLATIN
     Indication: MALIGNANT NEOPLASM OF UNKNOWN PRIMARY SITE
     Route: 042
     Dates: start: 20200428
  60. EUTHYROX [Concomitant]
     Active Substance: LEVOTHYROXINE SODIUM
     Route: 048
  61. KALIUM CHLORATUM [Concomitant]
     Active Substance: POTASSIUM CHLORIDE
     Indication: ABDOMINAL PAIN
     Route: 042
     Dates: start: 20200506, end: 20200511
  62. FORTECORTIN [Concomitant]
     Active Substance: DEXAMETHASONE
     Route: 048
     Dates: start: 20200715, end: 20200716
  63. NOLPAZA [Concomitant]
     Active Substance: PANTOPRAZOLE SODIUM
     Indication: ABDOMINAL PAIN
     Route: 048
     Dates: start: 20210424
  64. ORTANOL [Concomitant]
     Active Substance: OMEPRAZOLE
     Route: 048
     Dates: start: 20200225, end: 20200506
  65. EFFENTORA [Concomitant]
     Active Substance: FENTANYL CITRATE
     Route: 060
     Dates: start: 20200225
  66. RINGERFUNDIN [Concomitant]
     Active Substance: CALCIUM CHLORIDE\MAGNESIUM CHLORIDE\MALIC ACID\POTASSIUM CHLORIDE\SODIUM ACETATE\SODIUM CHLORIDE
     Indication: HYPOMAGNESAEMIA
  67. ONDANSETRON [Concomitant]
     Active Substance: ONDANSETRON
     Indication: VOMITING
     Route: 042
     Dates: start: 20200506, end: 20200507
  68. ONDANSETRON [Concomitant]
     Active Substance: ONDANSETRON
     Route: 042
     Dates: start: 20200603, end: 20200603
  69. GLUCOSA (CZECH REPUBLIC) [Concomitant]
     Indication: ABDOMINAL PAIN
     Route: 042
     Dates: start: 20200506, end: 20200508
  70. GLUCOSA (CZECH REPUBLIC) [Concomitant]
     Indication: VOMITING
     Route: 042
     Dates: start: 20200615, end: 20200618
  71. ALGIFEN (CZECH REPUBLIC) [Concomitant]
     Indication: ABDOMINAL PAIN
     Route: 048
     Dates: start: 20201209, end: 20201209
  72. FRAXIPARINE [Concomitant]
     Active Substance: NADROPARIN CALCIUM
     Route: 058
     Dates: start: 20210507
  73. FORTECORTIN [Concomitant]
     Active Substance: DEXAMETHASONE
     Route: 048
     Dates: start: 20200717, end: 20200804
  74. RINGERS SOLUTION [Concomitant]
     Active Substance: CALCIUM CHLORIDE\POTASSIUM CHLORIDE\SODIUM CHLORIDE
     Indication: ABDOMINAL PAIN
     Route: 042
     Dates: start: 20200615, end: 20200616
  75. ZARZIO [Concomitant]
     Active Substance: FILGRASTIM
     Indication: NEUTROPENIA
     Dosage: 48 OTHER
     Route: 058
     Dates: start: 20200610, end: 20200610
  76. LEXAURIN [Concomitant]
     Active Substance: BROMAZEPAM
     Route: 048
     Dates: start: 20210506, end: 20210506
  77. HYDROCORTISON [HYDROCORTISONE] [Concomitant]
     Active Substance: HYDROCORTISONE
     Indication: ABDOMINAL PAIN
     Route: 042
     Dates: start: 20200603, end: 20200603
  78. SALINE [Concomitant]
     Active Substance: SODIUM CHLORIDE
     Route: 042
     Dates: start: 20200325
  79. FURON [Concomitant]
     Active Substance: FUROSEMIDE
     Route: 048
     Dates: start: 20210507, end: 20210508
  80. OXYCODONE [Concomitant]
     Active Substance: OXYCODONE
     Route: 048
     Dates: start: 20200225, end: 20210504
  81. DEXAMETHASON [Concomitant]
     Active Substance: DEXAMETHASONE
     Route: 048
     Dates: start: 20210310, end: 20210314
  82. DEXAMETHASON [Concomitant]
     Active Substance: DEXAMETHASONE
     Route: 048
     Dates: start: 20210331, end: 20210401
  83. RINGERFUNDIN [Concomitant]
     Active Substance: CALCIUM CHLORIDE\MAGNESIUM CHLORIDE\MALIC ACID\POTASSIUM CHLORIDE\SODIUM ACETATE\SODIUM CHLORIDE
     Indication: VOMITING
     Dosage: (MILLILITER; CM3)
     Route: 042
     Dates: start: 20200603, end: 20200604
  84. KALIUM CHLORATUM [Concomitant]
     Active Substance: POTASSIUM CHLORIDE
     Indication: VOMITING
     Route: 042
     Dates: start: 20200615, end: 20200618
  85. ZOLPIDEM [Concomitant]
     Active Substance: ZOLPIDEM TARTRATE
     Route: 048
     Dates: start: 20200506, end: 20200506
  86. ONDANSETRON [Concomitant]
     Active Substance: ONDANSETRON
     Indication: ABDOMINAL PAIN
     Route: 048
     Dates: start: 20200318, end: 20200603
  87. MAGNESIUM SULFURICUM [Concomitant]
     Indication: ABDOMINAL PAIN
     Route: 042
     Dates: start: 20200506, end: 20200603
  88. FRAXIPARINE [Concomitant]
     Active Substance: NADROPARIN CALCIUM
     Route: 058
     Dates: start: 20210505, end: 20210506
  89. FORTECORTIN [Concomitant]
     Active Substance: DEXAMETHASONE
     Route: 048
     Dates: start: 20200805, end: 20200806
  90. RINGERS SOLUTION [Concomitant]
     Active Substance: CALCIUM CHLORIDE\POTASSIUM CHLORIDE\SODIUM CHLORIDE
     Indication: VOMITING
  91. SALINE [Concomitant]
     Active Substance: SODIUM CHLORIDE
     Route: 042
     Dates: start: 20210506, end: 20210506
  92. ESSENTIALE [Concomitant]
     Indication: PROPHYLAXIS
     Route: 048
     Dates: start: 20210504, end: 20210508
  93. ZOMETA [Concomitant]
     Active Substance: ZOLEDRONIC ACID
     Route: 042
     Dates: start: 20210507, end: 20210507
  94. PARAMAX RAPID [Concomitant]
     Indication: PROPHYLAXIS
     Route: 048
     Dates: start: 20210506, end: 20210506

REACTIONS (3)
  - Lumbar vertebral fracture [Recovered/Resolved]
  - Abdominal pain [Recovered/Resolved]
  - Secondary adrenocortical insufficiency [Recovered/Resolved]

NARRATIVE: CASE EVENT DATE: 20210314
